FAERS Safety Report 9785833 (Version 3)
Quarter: 2014Q2

REPORT INFORMATION
  Report Type: Report from Study
  Country: JP (occurrence: JP)
  Receive Date: 20131227
  Receipt Date: 20140430
  Transmission Date: 20141212
  Serious: Yes (Hospitalization)
  Sender: FDA-Public Use
  Company Number: JP-ABBVIE-12P-087-1022229-00

PATIENT
  Age: 71 Year
  Sex: Female

DRUGS (5)
  1. LIPACREON [Suspect]
     Indication: PANCREATIC INSUFFICIENCY
     Route: 048
     Dates: start: 20120313, end: 20120807
  2. RABEPRAZOLE SODIUM [Concomitant]
     Indication: PRODUCT USED FOR UNKNOWN INDICATION
     Route: 048
     Dates: end: 20120821
  3. CLOSTRIDIUM BUTYRICUM [Concomitant]
     Indication: PANCREATIC INSUFFICIENCY
     Route: 048
     Dates: end: 20120821
  4. ETIZOLAM [Concomitant]
     Indication: PANCREATIC INSUFFICIENCY
     Route: 048
     Dates: end: 20120821
  5. LOXOPROFEN SODIUM [Concomitant]
     Indication: PANCREATIC INSUFFICIENCY
     Route: 048
     Dates: start: 20120821, end: 20120913

REACTIONS (2)
  - Diarrhoea [Recovering/Resolving]
  - Vomiting [Recovering/Resolving]
